FAERS Safety Report 24389424 (Version 1)
Quarter: 2024Q4

REPORT INFORMATION
  Report Type: Spontaneous
  Country: US (occurrence: US)
  Receive Date: 20241003
  Receipt Date: 20241003
  Transmission Date: 20250114
  Serious: Yes (Other)
  Sender: STRIDES
  Company Number: US-STRIDES ARCOLAB LIMITED-2024SP012603

PATIENT
  Age: 29 Year
  Sex: Male

DRUGS (3)
  1. DIAZEPAM [Suspect]
     Active Substance: DIAZEPAM
     Indication: Product used for unknown indication
     Dosage: UNK
     Route: 065
  2. OXYCODONE [Suspect]
     Active Substance: OXYCODONE
     Indication: Product used for unknown indication
     Dosage: UNK
     Route: 065
  3. OXYMORPHONE [Suspect]
     Active Substance: OXYMORPHONE
     Indication: Product used for unknown indication
     Dosage: UNK
     Route: 065

REACTIONS (11)
  - Gait disturbance [Unknown]
  - Balance disorder [Unknown]
  - Loss of consciousness [Unknown]
  - Impaired driving ability [Unknown]
  - Miosis [Unknown]
  - Dysarthria [Unknown]
  - Hypertension [Unknown]
  - Heart rate increased [Unknown]
  - Confusional state [Unknown]
  - Somnolence [Unknown]
  - Toxicity to various agents [Unknown]
